FAERS Safety Report 20050295 (Version 1)
Quarter: 2021Q4

REPORT INFORMATION
  Report Type: Other
  Country: US (occurrence: US)
  Receive Date: 20211109
  Receipt Date: 20211109
  Transmission Date: 20220303
  Serious: Yes (Hospitalization)
  Sender: FDA-Public Use
  Company Number: US-HLS-202105566

PATIENT
  Age: 34 Year
  Sex: Male

DRUGS (1)
  1. CLOZAPINE [Suspect]
     Active Substance: CLOZAPINE
     Indication: Product used for unknown indication
     Dosage: 300 MG DAILY DOSE
     Route: 065

REACTIONS (14)
  - Akathisia [Recovering/Resolving]
  - Anxiety [Recovering/Resolving]
  - Hallucination, auditory [Recovering/Resolving]
  - Abnormal behaviour [Recovered/Resolved]
  - Flat affect [Recovering/Resolving]
  - Poverty of speech [Recovering/Resolving]
  - Restlessness [Recovering/Resolving]
  - Agitation [Recovering/Resolving]
  - Decreased eye contact [Recovering/Resolving]
  - Schizophrenia [Recovering/Resolving]
  - Dystonia [Recovering/Resolving]
  - Tardive dyskinesia [Recovering/Resolving]
  - Poor personal hygiene [Recovering/Resolving]
  - Thought blocking [Recovering/Resolving]
